FAERS Safety Report 5564657-4 (Version None)
Quarter: 2007Q4

REPORT INFORMATION
  Report Type: 
  Country: None (occurrence: None)
  Receive Date: 20071218
  Receipt Date: 20071211
  Transmission Date: 20080405
  Serious: Yes (Hospitalization)
  Sender: FDA-Public Use
  Company Number: US-GENENTECH-252372

PATIENT
  Age: 14 Year
  Sex: Female
  Weight: 39.6 kg

DRUGS (9)
  1. NUTROPIN AQ [Suspect]
     Indication: RENAL FAILURE CHRONIC
     Dosage: 2.7 MG, QD
     Route: 058
     Dates: start: 20071020
  2. NUTROPIN AQ [Suspect]
     Indication: GROWTH RETARDATION
  3. NIFEREX [Concomitant]
     Indication: DRUG USE FOR UNKNOWN INDICATION
  4. MULTI-VITAMIN [Concomitant]
     Indication: DRUG USE FOR UNKNOWN INDICATION
  5. PREDNISONE [Concomitant]
     Indication: DRUG USE FOR UNKNOWN INDICATION
  6. CELLCEPT [Concomitant]
     Indication: DRUG USE FOR UNKNOWN INDICATION
  7. PROGRAF [Concomitant]
     Indication: DRUG USE FOR UNKNOWN INDICATION
  8. PREVACID [Concomitant]
     Indication: DRUG USE FOR UNKNOWN INDICATION
  9. ACIDOPHILUS [Concomitant]
     Indication: DRUG USE FOR UNKNOWN INDICATION

REACTIONS (2)
  - BLOOD CREATININE INCREASED [None]
  - OVARIAN CYST [None]
